FAERS Safety Report 23657308 (Version 1)
Quarter: 2024Q1

REPORT INFORMATION
  Report Type: Spontaneous
  Country: ES (occurrence: ES)
  Receive Date: 20240321
  Receipt Date: 20240321
  Transmission Date: 20240410
  Serious: Yes (Life-Threatening, Hospitalization)
  Sender: FDA-Public Use
  Company Number: ES-MACLEODS PHARMA EU LTD-MAC2024046391

PATIENT

DRUGS (1)
  1. OLMESARTAN [Suspect]
     Active Substance: OLMESARTAN
     Indication: Product used for unknown indication
     Dosage: UNK
     Route: 065

REACTIONS (5)
  - Metabolic acidosis [Unknown]
  - Colitis microscopic [Recovering/Resolving]
  - Iron deficiency [Unknown]
  - Renal failure [Unknown]
  - Gastrointestinal disorder [Recovering/Resolving]
